FAERS Safety Report 15475428 (Version 2)
Quarter: 2018Q4

REPORT INFORMATION
  Report Type: Report from Study
  Country: US (occurrence: US)
  Receive Date: 20181008
  Receipt Date: 20181109
  Transmission Date: 20190205
  Serious: Yes (Death, Other)
  Sender: FDA-Public Use
  Company Number: US-GILEAD-2018-0366952

PATIENT
  Age: 69 Year
  Sex: Female
  Weight: 64.2 kg

DRUGS (14)
  1. OXYGEN. [Concomitant]
     Active Substance: OXYGEN
  2. FOSAMAX [Concomitant]
     Active Substance: ALENDRONATE SODIUM
  3. VITAMIN D [Concomitant]
     Active Substance: CHOLECALCIFEROL
  4. SILDENAFIL. [Concomitant]
     Active Substance: SILDENAFIL
  5. FLUTICASONE. [Concomitant]
     Active Substance: FLUTICASONE
  6. AMBRISENTAN [Suspect]
     Active Substance: AMBRISENTAN
     Indication: PULMONARY ARTERIAL HYPERTENSION
     Dosage: 10 MG, QD
     Route: 048
     Dates: start: 20160728
  7. SPIRONOLACTONE. [Concomitant]
     Active Substance: SPIRONOLACTONE
  8. FLUOXETINE [Concomitant]
     Active Substance: FLUOXETINE HYDROCHLORIDE
  9. REMODULIN [Concomitant]
     Active Substance: TREPROSTINIL
  10. METOLAZONE. [Concomitant]
     Active Substance: METOLAZONE
  11. GABAPENTIN. [Concomitant]
     Active Substance: GABAPENTIN
  12. TYLENOL [Concomitant]
     Active Substance: ACETAMINOPHEN
  13. POTASSIUM [Concomitant]
     Active Substance: POTASSIUM
  14. TORSEMIDE. [Concomitant]
     Active Substance: TORSEMIDE

REACTIONS (1)
  - Death [Fatal]

NARRATIVE: CASE EVENT DATE: 20180911
